FAERS Safety Report 9240169 (Version 1)
Quarter: 2013Q2

REPORT INFORMATION
  Report Type: Spontaneous
  Country: GB (occurrence: None)
  Receive Date: 20130417
  Receipt Date: 20130417
  Transmission Date: 20140414
  Serious: Yes (Hospitalization, Other)
  Sender: FDA-Public Use
  Company Number: CL-483-2013

PATIENT
  Age: 46 Year
  Sex: Female

DRUGS (9)
  1. METRONIDAZOLE [Suspect]
     Route: 042
     Dates: start: 20130402, end: 20130403
  2. CARBAMAZEPINE [Suspect]
     Indication: GRAND MAL CONVULSION
     Route: 048
  3. PARACETAMOL [Concomitant]
  4. MORPHINE [Concomitant]
  5. GENTAMICIN [Concomitant]
  6. CEFUROXIME [Concomitant]
  7. CODEINE [Concomitant]
  8. CEFTRIAXONE [Concomitant]
  9. DOXYCYCLINE [Concomitant]

REACTIONS (6)
  - Anticonvulsant drug level increased [None]
  - Confusional state [None]
  - Diplopia [None]
  - Dizziness [None]
  - Drug interaction [None]
  - Toxicity to various agents [None]
